FAERS Safety Report 10367650 (Version 1)
Quarter: 2014Q1

REPORT INFORMATION
  Report Type: Spontaneous
  Country: US (occurrence: None)
  Receive Date: 20140306
  Receipt Date: 20140306
  Transmission Date: 20141002
  Serious: Yes (Other)
  Sender: FDA-Public Use
  Company Number: 163-21880-13023799

PATIENT
  Sex: Male
  Weight: 80.8 kg

DRUGS (9)
  1. REVLIMID (LENALIDOMIDE) (CAPSULES) [Suspect]
     Indication: PLASMA CELL MYELOMA
     Dates: start: 20121015
  2. AMOXICILLIN-POT CLAVAULANATE) [Concomitant]
  3. ASA (ACETYLSALICYLIC ACID) [Concomitant]
  4. AZITHROMYCIN (AZITHROMYCIN) [Concomitant]
  5. CARVEDILOL (CARVEDILOL) [Concomitant]
  6. FOLIC ACID (FOLIC ACID) [Concomitant]
  7. FUROSEMIDE (FUROSEMIDE) [Concomitant]
  8. GUAIFENESIN (GUAIFENESIN) [Concomitant]
  9. NITRO-DUR (GLYCERYL TRINITRATE) [Concomitant]

REACTIONS (1)
  - Angina pectoris [None]
